FAERS Safety Report 12881176 (Version 1)
Quarter: 2016Q4

REPORT INFORMATION
  Report Type: Spontaneous
  Country: US (occurrence: US)
  Receive Date: 20161025
  Receipt Date: 20161025
  Transmission Date: 20170207
  Serious: No
  Sender: FDA-Public Use
  Company Number: US-JNJFOC-20160928450

PATIENT
  Sex: Male

DRUGS (1)
  1. RISPERDAL [Suspect]
     Active Substance: RISPERIDONE
     Indication: PRODUCT USED FOR UNKNOWN INDICATION
     Dosage: INITIATED IN 2008/2009
     Route: 065
     Dates: end: 2011

REACTIONS (4)
  - Delayed puberty [Unknown]
  - Adverse event [Unknown]
  - Gynaecomastia [Unknown]
  - Breast pain [Unknown]
